FAERS Safety Report 5544642-9 (Version None)
Quarter: 2007Q4

REPORT INFORMATION
  Report Type: 
  Country: None (occurrence: None)
  Receive Date: 20071210
  Receipt Date: 20070106
  Transmission Date: 20080405
  Serious: No
  Sender: FDA-Public Use
  Company Number: US-AMGEN-KDL206011

PATIENT
  Sex: Female

DRUGS (2)
  1. ENBREL [Suspect]
     Indication: JUVENILE ARTHRITIS
     Route: 058
     Dates: start: 20060401
  2. METHOTREXATE [Concomitant]
     Route: 048
     Dates: start: 20060101

REACTIONS (6)
  - CONCUSSION [None]
  - CROUP INFECTIOUS [None]
  - HEAD INJURY [None]
  - INFLUENZA [None]
  - PHARYNGITIS STREPTOCOCCAL [None]
  - SINUSITIS [None]
